FAERS Safety Report 20032635 (Version 2)
Quarter: 2021Q4

REPORT INFORMATION
  Report Type: Spontaneous
  Country: US (occurrence: US)
  Receive Date: 20211103
  Receipt Date: 20211206
  Transmission Date: 20220303
  Serious: Yes (Other)
  Sender: FDA-Public Use
  Company Number: US-CELGENE-USA-20211008153

PATIENT
  Sex: Male

DRUGS (2)
  1. REVLIMID [Suspect]
     Active Substance: LENALIDOMIDE
     Indication: Plasma cell myeloma
     Dosage: 25 MILLIGRAM
     Route: 048
     Dates: start: 20210927
  2. REVLIMID [Suspect]
     Active Substance: LENALIDOMIDE
     Indication: Pain

REACTIONS (1)
  - Gastrointestinal bacterial infection [Recovered/Resolved]

NARRATIVE: CASE EVENT DATE: 20210101
